FAERS Safety Report 18260478 (Version 1)
Quarter: 2020Q3

REPORT INFORMATION
  Report Type: Spontaneous
  Country: GB (occurrence: GB)
  Receive Date: 20200914
  Receipt Date: 20200914
  Transmission Date: 20201103
  Serious: Yes (Life-Threatening, Hospitalization, Disabling, Other)
  Sender: FDA-Public Use
  Company Number: GB-TEVA-2020-GB-1825778

PATIENT
  Age: 95 Year
  Sex: Female

DRUGS (3)
  1. MICONAZOLE. [Interacting]
     Active Substance: MICONAZOLE
     Indication: GROIN INFECTION
     Dosage: MDU
     Route: 061
  2. WARFARIN SODIUM. [Suspect]
     Active Substance: WARFARIN SODIUM
     Indication: ATRIAL FIBRILLATION
     Dosage: UNIT DOSE 1.5MG
     Route: 048
  3. MICONAZOLE. [Interacting]
     Active Substance: MICONAZOLE
     Indication: GROIN INFECTION
     Dosage: AS REQUIRED
     Route: 061

REACTIONS (7)
  - Cerebral haemorrhage [Unknown]
  - Dysarthria [Unknown]
  - International normalised ratio increased [Not Recovered/Not Resolved]
  - Abnormal behaviour [Unknown]
  - Agitation [Unknown]
  - Drug monitoring procedure not performed [Unknown]
  - Labelled drug-drug interaction medication error [Unknown]
